FAERS Safety Report 4631610-4 (Version None)
Quarter: 2005Q2

REPORT INFORMATION
  Report Type: 
  Country: None (occurrence: None)
  Receive Date: 20050407
  Receipt Date: 20041028
  Transmission Date: 20051028
  Serious: Yes (Other)
  Sender: FDA-Public Use
  Company Number: 207057

PATIENT
  Sex: Female

DRUGS (1)
  1. AVONEX [Suspect]
     Indication: MULTIPLE SCLEROSIS
     Dosage: 30 UG;IM
     Route: 030
     Dates: start: 20010101

REACTIONS (3)
  - SERUM SICKNESS [None]
  - STOMATITIS [None]
  - VASCULITIS [None]
